FAERS Safety Report 4521898-2 (Version None)
Quarter: 2004Q4

REPORT INFORMATION
  Report Type: 
  Country: None (occurrence: None)
  Receive Date: 20041207
  Receipt Date: 20041207
  Transmission Date: 20050328
  Serious: Yes (Hospitalization)
  Sender: FDA-Public Use
  Company Number: None

PATIENT
  Age: 33 Year
  Sex: Female
  Weight: 68.0396 kg

DRUGS (1)
  1. RELPAX [Suspect]
     Indication: MIGRAINE
     Dosage: 40 MG % PO
     Route: 048
     Dates: start: 20040505

REACTIONS (4)
  - APHASIA [None]
  - COMA [None]
  - MOVEMENT DISORDER [None]
  - SYNCOPE [None]
